FAERS Safety Report 9228147 (Version 2)
Quarter: 2013Q2

REPORT INFORMATION
  Report Type: Spontaneous
  Country: US (occurrence: US)
  Receive Date: 20130412
  Receipt Date: 20130429
  Transmission Date: 20140414
  Serious: Yes (Hospitalization)
  Sender: FDA-Public Use
  Company Number: US-ROCHE-1210242

PATIENT
  Age: 51 Year
  Sex: Female

DRUGS (5)
  1. PEGASYS [Suspect]
     Indication: CHRONIC HEPATITIS C
     Route: 058
     Dates: start: 20130117, end: 20130123
  2. INCIVEK [Suspect]
     Indication: CHRONIC HEPATITIS C
     Route: 048
     Dates: start: 20130117, end: 20130123
  3. RIBAPAK [Suspect]
     Indication: CHRONIC HEPATITIS C
     Route: 048
     Dates: start: 20130117, end: 20130123
  4. RIBAPAK [Suspect]
     Route: 048
     Dates: start: 20130117, end: 20130123
  5. CARBAMAZEPINE [Concomitant]

REACTIONS (7)
  - Convulsion [Recovered/Resolved]
  - Dizziness [Unknown]
  - Balance disorder [Unknown]
  - Eye pain [Unknown]
  - Vision blurred [Unknown]
  - Drug hypersensitivity [Unknown]
  - Anticonvulsant drug level increased [Unknown]
